FAERS Safety Report 9251952 (Version 1)
Quarter: 2013Q1

REPORT INFORMATION
  Report Type: Spontaneous
  Country: US (occurrence: None)
  Receive Date: 20130305
  Receipt Date: 20130305
  Transmission Date: 20140127
  Serious: Yes (Other)
  Sender: FDA-Public Use
  Company Number: 163-21880-12083445

PATIENT
  Age: 65 Year
  Sex: Female

DRUGS (1)
  1. REVLIMID [Suspect]
     Indication: PLASMA CELL MYELOMA
     Dosage: 10 MG , 2 DAYS ON, 1 DAY OFF FOR 28 DAYS, PO
     Route: 048
     Dates: start: 20110810

REACTIONS (2)
  - Cataract [None]
  - Diarrhoea [None]
